FAERS Safety Report 6659545-6 (Version None)
Quarter: 2010Q1

REPORT INFORMATION
  Report Type: 
  Country: None (occurrence: None)
  Receive Date: 20100330
  Receipt Date: 20100329
  Transmission Date: 20100710
  Serious: Yes (Hospitalization)
  Sender: FDA-Public Use
  Company Number: GB-WYE-G05859210

PATIENT
  Age: 70 Year
  Sex: Female

DRUGS (8)
  1. TAZOCIN [Suspect]
     Indication: INFECTION
     Dosage: 4.5G (DOSAGE INTERVAL UNSPECIFIED)
     Route: 042
     Dates: start: 20100220, end: 20100220
  2. ENOXAPARIN SODIUM [Concomitant]
     Indication: DRUG USE FOR UNKNOWN INDICATION
     Route: 058
     Dates: start: 20100215
  3. XALATAN [Concomitant]
     Indication: GLAUCOMA
     Dosage: UNKNOWN
     Route: 047
  4. DF118 [Concomitant]
     Indication: DRUG USE FOR UNKNOWN INDICATION
     Dates: start: 20100216
  5. FLOXACILLIN SODIUM [Concomitant]
     Indication: INFECTION
     Dosage: 1G (DOSAGE INTERVAL UNSPECIFIED)
     Route: 042
     Dates: start: 20100215, end: 20100220
  6. NITROFURANTOIN [Concomitant]
     Indication: DRUG USE FOR UNKNOWN INDICATION
     Route: 048
     Dates: start: 20100219, end: 20100220
  7. BENZYLPENICILLIN [Concomitant]
     Indication: INFECTION
     Dosage: 1.2G (DOSAGE INTERVAL UNSPECIFIED)
     Route: 042
     Dates: start: 20100215, end: 20100216
  8. CLINDAMYCIN [Concomitant]
     Indication: INFECTION
     Dosage: 450MG (DOSAGE INTERVAL UNSPECIFIED)
     Route: 048
     Dates: start: 20100216, end: 20100222

REACTIONS (2)
  - RASH [None]
  - SWELLING [None]
